FAERS Safety Report 6996659-5 (Version None)
Quarter: 2010Q3

REPORT INFORMATION
  Report Type: 
  Country: None (occurrence: None)
  Receive Date: 20100918
  Receipt Date: 20090505
  Transmission Date: 20110219
  Serious: No
  Sender: FDA-Public Use
  Company Number: US-WYE-H09229209

PATIENT
  Age: 59 Year
  Sex: Female

DRUGS (3)
  1. EFFEXOR XR [Suspect]
     Indication: FIBROMYALGIA
     Route: 048
     Dates: start: 20080101, end: 20080101
  2. EFFEXOR XR [Suspect]
     Indication: DEPRESSION
  3. LORTAB [Concomitant]

REACTIONS (2)
  - FEELING ABNORMAL [None]
  - HEADACHE [None]
